FAERS Safety Report 11161197 (Version 1)
Quarter: 2015Q2

REPORT INFORMATION
  Report Type: Spontaneous
  Country: US (occurrence: US)
  Receive Date: 20150604
  Receipt Date: 20150604
  Transmission Date: 20150821
  Serious: No
  Sender: FDA-Public Use
  Company Number: US-SA-2014SA075176

PATIENT
  Sex: Male

DRUGS (3)
  1. LANTUS [Suspect]
     Active Substance: INSULIN GLARGINE
     Indication: DIABETES MELLITUS
     Dosage: DOSE:40 UNIT(S)
     Route: 065
  2. FLEXPEN [Concomitant]
     Active Substance: UNSPECIFIED INGREDIENT
  3. NOVOLOG [Suspect]
     Active Substance: INSULIN ASPART
     Indication: PRODUCT USED FOR UNKNOWN INDICATION
     Dosage: DOSE: 20 UNITS BEFORE MEALS, 5 UNITS BEFORE SNACKS
     Route: 065

REACTIONS (1)
  - Blood glucose increased [Recovered/Resolved]
